FAERS Safety Report 5532833-2 (Version None)
Quarter: 2007Q4

REPORT INFORMATION
  Report Type: 
  Country: None (occurrence: None)
  Receive Date: 20071204
  Receipt Date: 20071203
  Transmission Date: 20080405
  Serious: Yes (Hospitalization)
  Sender: FDA-Public Use
  Company Number: AU-BRISTOL-MYERS SQUIBB COMPANY-14002182

PATIENT
  Age: 75 Year
  Sex: Male

DRUGS (5)
  1. IRBESARTAN [Suspect]
     Dosage: RESTARTED ON 10-APRIL-2007.
     Route: 048
  2. FUROSEMIDE [Suspect]
     Dosage: RESTARTED ON 10-APRIL-2007
  3. METOPROLOL TARTRATE [Concomitant]
     Route: 048
  4. CLOPIDOGREL BISULFATE [Concomitant]
     Route: 048
  5. SLOW-K [Concomitant]
     Route: 048

REACTIONS (3)
  - COUGH [None]
  - DEHYDRATION [None]
  - HYPOTENSION [None]
